FAERS Safety Report 24168709 (Version 1)
Quarter: 2024Q3

REPORT INFORMATION
  Report Type: Report from Study
  Country: EG (occurrence: EG)
  Receive Date: 20240802
  Receipt Date: 20240802
  Transmission Date: 20241016
  Serious: Yes (Life-Threatening, Hospitalization, Other)
  Sender: SANDOZ
  Company Number: EG-SANDOZ-SDZ2024EG056750

PATIENT
  Age: 41 Year
  Sex: Male
  Weight: 80 kg

DRUGS (17)
  1. HYRIMOZ [Suspect]
     Active Substance: ADALIMUMAB-ADAZ
     Indication: Hidradenitis
     Dosage: 40 MG, Q2W
     Route: 058
  2. HYRIMOZ [Suspect]
     Active Substance: ADALIMUMAB-ADAZ
     Dosage: 40 MG EVERY OTHER WEEK
     Route: 065
     Dates: start: 2024
  3. HYRIMOZ [Suspect]
     Active Substance: ADALIMUMAB-ADAZ
     Indication: Behcet^s syndrome
     Dosage: 80 MG, Q2W
     Route: 058
     Dates: start: 2024
  4. ATORVASTATIN CALCIUM [Concomitant]
     Active Substance: ATORVASTATIN CALCIUM
     Indication: Blood cholesterol
     Dosage: 40 MG, QD
     Route: 048
  5. COLCHICINE [Concomitant]
     Active Substance: COLCHICINE
     Indication: Product used for unknown indication
     Dosage: UNK, TID
     Route: 048
     Dates: start: 202302
  6. DIAMICRON [Concomitant]
     Indication: Diabetes mellitus
     Dosage: 30 MG, QD
     Route: 048
     Dates: start: 202302
  7. FOLIC ACID [Concomitant]
     Active Substance: FOLIC ACID
     Indication: Mineral supplementation
     Dosage: 2 DF, 2 TABLETS WEEKLY
     Route: 048
     Dates: start: 202302
  8. JUSPRIN [Concomitant]
     Indication: Product used for unknown indication
     Dosage: ONE TABLET PER DAY
     Route: 048
     Dates: start: 202403
  9. METHOTREXATE [Concomitant]
     Active Substance: METHOTREXATE
     Indication: Chemotherapy
     Dosage: 1 CM, QW
     Route: 065
     Dates: start: 2024
  10. Methyltechno [Concomitant]
     Indication: Nervous system disorder
     Dosage: UNK, QD; FORMULATION: ORAL FILMS
     Route: 048
     Dates: start: 202302
  11. Mobitil [Concomitant]
     Indication: Nervous system disorder
     Dosage: UNK, QMO
     Route: 042
     Dates: start: 2024
  12. NEBIVOLOL HYDROCHLORIDE [Concomitant]
     Active Substance: NEBIVOLOL HYDROCHLORIDE
     Indication: Hypertension
     Dosage: 2.5 MG, QD
     Route: 048
  13. OSTEOCARE [Concomitant]
     Active Substance: CALCIUM\CHOLECALCIFEROL\MAGNESIUM\ZINC
     Indication: Vitamin supplementation
     Dosage: UNK
     Route: 048
     Dates: start: 202302
  14. PENTASA [Concomitant]
     Active Substance: MESALAMINE
     Indication: Colitis ulcerative
     Dosage: UNK
     Route: 065
  15. Solupred [Concomitant]
     Indication: Product used for unknown indication
     Dosage: UNK, QD
     Route: 048
     Dates: start: 202302
  16. SUGARLO PLUS [Concomitant]
     Indication: Diabetes mellitus
     Dosage: 1000/50
     Route: 048
     Dates: start: 202302
  17. XARELTO [Concomitant]
     Active Substance: RIVAROXABAN
     Indication: Thrombosis
     Dosage: 20 MG
     Route: 048
     Dates: start: 202302, end: 202406

REACTIONS (16)
  - Pulmonary thrombosis [Unknown]
  - Behcet^s syndrome [Unknown]
  - Thrombosis [Unknown]
  - Angina unstable [Unknown]
  - Angina pectoris [Recovering/Resolving]
  - Pulmonary pain [Recovering/Resolving]
  - Brain oedema [Unknown]
  - Uveitis [Unknown]
  - Cardiomyopathy [Unknown]
  - Left ventricular enlargement [Unknown]
  - Hydrocephalus [Unknown]
  - Lymphocyte count increased [Not Recovered/Not Resolved]
  - Colitis ulcerative [Not Recovered/Not Resolved]
  - Fibrin D dimer increased [Unknown]
  - Pyrexia [Unknown]
  - Off label use [Unknown]

NARRATIVE: CASE EVENT DATE: 20230206
